FAERS Safety Report 6662450-2 (Version None)
Quarter: 2010Q1

REPORT INFORMATION
  Report Type: 
  Country: None (occurrence: None)
  Receive Date: 20100329
  Receipt Date: 20100323
  Transmission Date: 20100710
  Serious: Yes (Hospitalization)
  Sender: FDA-Public Use
  Company Number: 2009SP025167

PATIENT
  Age: 76 Year
  Sex: Female
  Weight: 55.2 kg

DRUGS (3)
  1. TEMODAR [Suspect]
     Indication: ACUTE MYELOID LEUKAEMIA
     Dosage: 100 MG/M2; QD; PO, 200 MG/M2; QD; PO, 200 MG/M2; QD' PO
     Route: 048
     Dates: start: 20090828, end: 20090910
  2. TEMODAR [Suspect]
     Indication: ACUTE MYELOID LEUKAEMIA
     Dosage: 100 MG/M2; QD; PO, 200 MG/M2; QD; PO, 200 MG/M2; QD' PO
     Route: 048
     Dates: start: 20090911, end: 20090911
  3. TEMODAR [Suspect]
     Indication: ACUTE MYELOID LEUKAEMIA
     Dosage: 100 MG/M2; QD; PO, 200 MG/M2; QD; PO, 200 MG/M2; QD' PO
     Route: 048
     Dates: start: 20090914, end: 20090919

REACTIONS (5)
  - BLAST CELL COUNT INCREASED [None]
  - FEBRILE NEUTROPENIA [None]
  - HAEMATOCRIT DECREASED [None]
  - HAEMOGLOBIN DECREASED [None]
  - PLATELET COUNT DECREASED [None]
